FAERS Safety Report 14090752 (Version 12)
Quarter: 2018Q3

REPORT INFORMATION
  Report Type: Report from Study
  Country: US (occurrence: US)
  Receive Date: 20171015
  Receipt Date: 20180824
  Transmission Date: 20181010
  Serious: Yes (Life-Threatening, Hospitalization, Other)
  Sender: FDA-Public Use
  Company Number: US-TESARO, INC-US-2017TSO02926

PATIENT
  Age: 82 Year
  Sex: Female

DRUGS (9)
  1. ZEJULA [Suspect]
     Active Substance: NIRAPARIB
     Dosage: 100 MG, QD
     Route: 048
  2. ZEJULA [Suspect]
     Active Substance: NIRAPARIB
     Dosage: 100 MG, QD
     Route: 048
  3. ZEJULA [Suspect]
     Active Substance: NIRAPARIB
     Dosage: 100 MG ALTERNATING WITH 200 MG , QD
     Route: 048
  4. ZEJULA [Suspect]
     Active Substance: NIRAPARIB
     Dosage: 100 MG, QD
     Route: 048
     Dates: start: 20180102
  5. ZEJULA [Suspect]
     Active Substance: NIRAPARIB
     Dosage: 100 MG, TID
     Route: 048
  6. ZEJULA [Suspect]
     Active Substance: NIRAPARIB
     Indication: OVARIAN CANCER
     Dosage: 300 MG, QD
     Route: 048
     Dates: start: 20170921, end: 20170926
  7. ZEJULA [Suspect]
     Active Substance: NIRAPARIB
     Dosage: 200 MG, QD
     Route: 048
  8. ZEJULA [Suspect]
     Active Substance: NIRAPARIB
     Dosage: 300 MG, UNK
  9. ZEJULA [Suspect]
     Active Substance: NIRAPARIB
     Dosage: 200 MG, QD
     Route: 048
     Dates: start: 20171005

REACTIONS (26)
  - Paranoia [Not Recovered/Not Resolved]
  - Secretion discharge [Not Recovered/Not Resolved]
  - Cellulitis [Unknown]
  - Inappropriate schedule of drug administration [Not Recovered/Not Resolved]
  - Decreased appetite [Recovered/Resolved]
  - Insomnia [Not Recovered/Not Resolved]
  - Nasopharyngitis [Recovered/Resolved]
  - Miosis [Not Recovered/Not Resolved]
  - Bronchitis [Recovered/Resolved]
  - Cerebrovascular accident [Not Recovered/Not Resolved]
  - Heart rate increased [Not Recovered/Not Resolved]
  - Hallucination [Not Recovered/Not Resolved]
  - Logorrhoea [Not Recovered/Not Resolved]
  - Hypoacusis [Unknown]
  - Increased appetite [Not Recovered/Not Resolved]
  - Blood pressure decreased [Not Recovered/Not Resolved]
  - Adverse drug reaction [Not Recovered/Not Resolved]
  - Drug intolerance [Not Recovered/Not Resolved]
  - Cardiac disorder [Not Recovered/Not Resolved]
  - Screaming [Not Recovered/Not Resolved]
  - Ocular hyperaemia [Not Recovered/Not Resolved]
  - Cough [Not Recovered/Not Resolved]
  - Mental disorder [Unknown]
  - Abnormal behaviour [Not Recovered/Not Resolved]
  - Anxiety [Recovering/Resolving]
  - Palpitations [Not Recovered/Not Resolved]

NARRATIVE: CASE EVENT DATE: 2017
